FAERS Safety Report 6062663-7 (Version None)
Quarter: 2009Q1

REPORT INFORMATION
  Report Type: 
  Country: None (occurrence: None)
  Receive Date: 20090129
  Receipt Date: 20090115
  Transmission Date: 20090719
  Serious: Yes (Hospitalization, Other)
  Sender: FDA-Public Use
  Company Number: CIP08002431

PATIENT
  Age: 81 Year
  Sex: Female

DRUGS (9)
  1. RISEDRONATE SODIUM [Suspect]
     Indication: OSTEOPOROSIS
     Dosage: 2.5 MG DAILY, ORAL
     Route: 048
     Dates: start: 20030116, end: 20080106
  2. BONALON /01220302/ (ALENDRONATE SODIUM) [Concomitant]
  3. OPALMON (LIMAPROST) [Concomitant]
  4. JUVELA /00110502/ (TOCOPHERYL ACETATE) [Concomitant]
  5. ALFAROL (ALFACALCIDOL) [Concomitant]
  6. CALCIUM LACTATE (CALCIUM LACTATE) [Concomitant]
  7. SELBEX (TEPRENONE) [Concomitant]
  8. VIT K CAP [Concomitant]
  9. ADOFEED (FLURBIPROFEN) [Concomitant]

REACTIONS (5)
  - BONE PAIN [None]
  - FEMUR FRACTURE [None]
  - GAIT DISTURBANCE [None]
  - PAIN [None]
  - PAIN IN EXTREMITY [None]
